FAERS Safety Report 23946530 (Version 1)
Quarter: 2024Q2

REPORT INFORMATION
  Report Type: Spontaneous
  Country: US (occurrence: None)
  Receive Date: 20240606
  Receipt Date: 20240606
  Transmission Date: 20240715
  Serious: No
  Sender: FDA-Public Use
  Company Number: None

PATIENT
  Sex: Female

DRUGS (3)
  1. OPSUMIT [Concomitant]
     Active Substance: MACITENTAN
  2. REMODULIN [Concomitant]
     Active Substance: TREPROSTINIL
  3. REMODULIN [Suspect]
     Active Substance: TREPROSTINIL

REACTIONS (6)
  - Dyspnoea [None]
  - Sensitivity to weather change [None]
  - Dyspnoea exertional [None]
  - Device breakage [None]
  - General physical health deterioration [None]
  - Decreased activity [None]
